FAERS Safety Report 6769752-X (Version None)
Quarter: 2010Q2

REPORT INFORMATION
  Report Type: 
  Country: None (occurrence: None)
  Receive Date: 20100615
  Receipt Date: 20100604
  Transmission Date: 20101027
  Serious: Yes (Death)
  Sender: FDA-Public Use
  Company Number: MX-ROCHE-707864

PATIENT
  Age: 60 Year
  Sex: Female

DRUGS (2)
  1. PEGASYS [Suspect]
     Indication: HEPATITIS C
     Dosage: FREQUENCY: WEEKLY.
     Route: 058
     Dates: start: 20090401, end: 20100501
  2. COPEGUS [Suspect]
     Indication: HEPATITIS C
     Dosage: FREQUENCY: 5 DAILY
     Route: 048
     Dates: start: 20090401, end: 20100501

REACTIONS (4)
  - ANAEMIA [None]
  - GASTROENTERITIS [None]
  - LEUKOPENIA [None]
  - THROMBOCYTOPENIA [None]
